FAERS Safety Report 15139209 (Version 2)
Quarter: 2018Q3

REPORT INFORMATION
  Report Type: Spontaneous
  Country: US (occurrence: US)
  Receive Date: 20180713
  Receipt Date: 20180802
  Transmission Date: 20181010
  Serious: No
  Sender: FDA-Public Use
  Company Number: US-PFIZER INC-2018254726

PATIENT
  Age: 87 Year
  Sex: Female

DRUGS (7)
  1. ADVIL [Concomitant]
     Active Substance: IBUPROFEN
     Indication: SCIATICA
     Dosage: UNK
  2. LYRICA [Suspect]
     Active Substance: PREGABALIN
     Indication: SCIATICA
     Dosage: 50 MG, DAILY(1 CAPSULE (50MG) TAKEN BY MOUTH DAILY FOR FIRST 2 DAYS)
     Route: 048
     Dates: start: 20180704
  3. LYRICA [Suspect]
     Active Substance: PREGABALIN
     Dosage: 75 MG, 1X/DAY
  4. LYRICA [Suspect]
     Active Substance: PREGABALIN
     Indication: OSTEOPOROSIS
     Dosage: 150 MG, DAILY(3 CAPSULES (150MG) TAKEN BY MOUTH DAILY)(150 MG/DAY)
     Route: 048
  5. ADVIL [Concomitant]
     Active Substance: IBUPROFEN
     Indication: OSTEOPOROSIS
  6. LYRICA [Suspect]
     Active Substance: PREGABALIN
     Indication: LUMBAR SPINAL STENOSIS
     Dosage: 100 MG, DAILY(INCREASED TO 2 CAPSULES (100MG) TAKEN BY MOUTH DAILY FOR THE NEXT TWO DAYS)
     Route: 048
  7. ADVIL [Concomitant]
     Active Substance: IBUPROFEN
     Indication: LUMBAR SPINAL STENOSIS

REACTIONS (2)
  - Intentional product use issue [Unknown]
  - Pain [Unknown]

NARRATIVE: CASE EVENT DATE: 20180708
